FAERS Safety Report 5894084-1 (Version None)
Quarter: 2008Q3

REPORT INFORMATION
  Report Type: 
  Country: None (occurrence: None)
  Receive Date: 20080923
  Receipt Date: 20071217
  Transmission Date: 20090109
  Serious: No
  Sender: FDA-Public Use
  Company Number: US-ASTRAZENECA-2007UW28547

PATIENT
  Age: 52 Year
  Sex: Male
  Weight: 70.3 kg

DRUGS (4)
  1. SEROQUEL [Suspect]
     Indication: BIPOLAR DISORDER
     Route: 048
     Dates: start: 20050201
  2. WELLBUTRIN [Interacting]
  3. CYMBALTA [Interacting]
  4. PRILOSEC OTC [Concomitant]
     Route: 048

REACTIONS (2)
  - DRUG INTERACTION [None]
  - ORTHOSTATIC HYPOTENSION [None]
